FAERS Safety Report 8771928 (Version 4)
Quarter: 2013Q4

REPORT INFORMATION
  Report Type: Spontaneous
  Country: JP (occurrence: JP)
  Receive Date: 20120905
  Receipt Date: 20131203
  Transmission Date: 20140711
  Serious: Yes (Hospitalization, Other)
  Sender: FDA-Public Use
  Company Number: PHHY2012JP010972

PATIENT
  Age: 40 Year
  Sex: Female
  Weight: 56 kg

DRUGS (7)
  1. FTY 720 [Suspect]
     Dosage: 0.5 MG, QD
     Route: 048
     Dates: start: 20120208
  2. BETAFERON [Concomitant]
     Indication: MULTIPLE SCLEROSIS
     Route: 058
     Dates: end: 20120203
  3. GABALON [Concomitant]
     Indication: MULTIPLE SCLEROSIS
     Dosage: 30 MG, QD
     Route: 048
     Dates: end: 20120305
  4. RIVOTRIL [Concomitant]
     Indication: MULTIPLE SCLEROSIS
     Dosage: 1 MG, UNK
     Route: 048
     Dates: end: 20120305
  5. PRIDOL [Concomitant]
     Indication: MULTIPLE SCLEROSIS
     Dosage: 1 G, UNK
     Dates: start: 20110712, end: 20110714
  6. ETIZOLAM [Concomitant]
     Indication: NEUROSIS
     Dosage: 1.5 MG, UNK
     Route: 048
  7. SEFTAC [Concomitant]
     Dosage: 150 MG, UNK
     Route: 048

REACTIONS (2)
  - Electrocardiogram QT prolonged [Recovered/Resolved]
  - Bradycardia [Recovered/Resolved]
